FAERS Safety Report 19710964 (Version 1)
Quarter: 2021Q3

REPORT INFORMATION
  Report Type: Report from Study
  Country: GB (occurrence: GB)
  Receive Date: 20210817
  Receipt Date: 20210817
  Transmission Date: 20211014
  Serious: Yes (Other)
  Sender: FDA-Public Use
  Company Number: GB-SA-2021SA119954

PATIENT
  Age: 47 Year
  Sex: Female

DRUGS (1)
  1. DUPILUMAB [Suspect]
     Active Substance: DUPILUMAB
     Indication: DERMATITIS ATOPIC
     Route: 058
     Dates: start: 202102

REACTIONS (8)
  - Ocular hyperaemia [Unknown]
  - Visual impairment [Unknown]
  - Eye pain [Unknown]
  - Injection site erythema [Recovered/Resolved]
  - Cyst [Unknown]
  - Ophthalmic herpes zoster [Unknown]
  - Condition aggravated [Unknown]
  - Injection site mass [Recovered/Resolved]

NARRATIVE: CASE EVENT DATE: 2021
